FAERS Safety Report 11964536 (Version 1)
Quarter: 2016Q1

REPORT INFORMATION
  Report Type: Spontaneous
  Country: None (occurrence: None)
  Receive Date: 20160125
  Receipt Date: 20160125
  Transmission Date: 20160526
  Serious: Yes (Death)
  Sender: FDA-Public Use
  Company Number: None

PATIENT
  Age: 58 Year
  Sex: Male
  Weight: 80 kg

DRUGS (7)
  1. CLARITIN [Concomitant]
     Active Substance: LORATADINE
  2. MULTIVITAMINS [Concomitant]
     Active Substance: VITAMINS
  3. LEVAQUIN [Suspect]
     Active Substance: LEVOFLOXACIN
     Indication: PROSTATE INFECTION
     Dosage: 1
     Route: 048
     Dates: start: 20151120, end: 20160120
  4. VENTOLIN INHALATOR [Concomitant]
  5. PREDNISONE. [Concomitant]
     Active Substance: PREDNISONE
  6. OTRIVIN [Concomitant]
     Active Substance: XYLOMETAZOLINE
  7. BETACLOMINE [Concomitant]

REACTIONS (3)
  - Sudden death [None]
  - Myocardial infarction [None]
  - Loss of consciousness [None]
